FAERS Safety Report 17225385 (Version 1)
Quarter: 2019Q4

REPORT INFORMATION
  Report Type: Spontaneous
  Country: US (occurrence: US)
  Receive Date: 20191210
  Receipt Date: 20191210
  Transmission Date: 20200122
  Serious: Yes (Hospitalization)
  Sender: FDA-Public Use
  Company Number: None

PATIENT
  Age: 21 Year
  Sex: Male
  Weight: 120.7 kg

DRUGS (3)
  1. CISPLATIN. [Suspect]
     Active Substance: CISPLATIN
     Dates: end: 20191108
  2. TAXOL [Suspect]
     Active Substance: PACLITAXEL
     Dates: end: 20191104
  3. IFOSFAMIDE. [Suspect]
     Active Substance: IFOSFAMIDE
     Dates: end: 20191108

REACTIONS (5)
  - Infusion site pain [None]
  - Febrile neutropenia [None]
  - Sepsis [None]
  - Skin ulcer [None]
  - Infusion site infection [None]

NARRATIVE: CASE EVENT DATE: 20191115
